FAERS Safety Report 10056426 (Version 3)
Quarter: 2014Q2

REPORT INFORMATION
  Report Type: Spontaneous
  Country: IT (occurrence: None)
  Receive Date: 20140401
  Receipt Date: 20140508
  Transmission Date: 20141212
  Serious: Yes (Hospitalization)
  Sender: FDA-Public Use
  Company Number: NL01PV14.35635

PATIENT
  Age: 34 Year
  Sex: Female

DRUGS (7)
  1. ZOLPIDEM [Suspect]
     Indication: DRUG ABUSE
     Dosage: TOTAL
     Route: 048
     Dates: start: 20140220, end: 20140220
  2. ZOLPIDEM [Suspect]
     Indication: DEPRESSION
     Dosage: TOTAL
     Route: 048
     Dates: start: 20140220, end: 20140220
  3. ZOLPIDEM [Suspect]
     Indication: SLEEP DISORDER
     Dosage: TOTAL
     Route: 048
     Dates: start: 20140220, end: 20140220
  4. HALCION [Suspect]
     Indication: DRUG ABUSE
     Dosage: TOTAL
     Route: 048
     Dates: start: 20140220, end: 20140220
  5. HALCION [Suspect]
     Indication: DEPRESSION
     Dosage: TOTAL
     Route: 048
     Dates: start: 20140220, end: 20140220
  6. LEXOTAN [Suspect]
     Indication: DRUG ABUSE
     Dosage: TOTAL
     Route: 048
     Dates: start: 20140220, end: 20140220
  7. LEXOTAN [Suspect]
     Indication: ANXIETY
     Dosage: TOTAL
     Route: 048
     Dates: start: 20140220, end: 20140220

REACTIONS (3)
  - Drug abuse [None]
  - Sopor [None]
  - Intentional self-injury [None]
